FAERS Safety Report 5925600-9 (Version None)
Quarter: 2008Q4

REPORT INFORMATION
  Report Type: 
  Country: None (occurrence: None)
  Receive Date: 20081021
  Receipt Date: 20081014
  Transmission Date: 20090506
  Serious: Yes (Other)
  Sender: FDA-Public Use
  Company Number: A0752684A

PATIENT
  Age: 3 Year
  Sex: Female

DRUGS (1)
  1. FLUTICASONE PROPIONATE [Suspect]
     Indication: BRONCHOSPASM
     Dosage: 250MCG TWICE PER DAY
     Route: 055
     Dates: start: 20080930

REACTIONS (6)
  - ANOREXIA [None]
  - ASTHENIA [None]
  - PNEUMONIA [None]
  - PRODUCTIVE COUGH [None]
  - PYREXIA [None]
  - VARICELLA [None]
